FAERS Safety Report 9828474 (Version 1)
Quarter: 2014Q1

REPORT INFORMATION
  Report Type: Spontaneous
  Country: GB (occurrence: GB)
  Receive Date: 20140117
  Receipt Date: 20140117
  Transmission Date: 20141002
  Serious: Yes (Other)
  Sender: FDA-Public Use
  Company Number: GB-UCBSA-109143

PATIENT
  Age: 69 Year
  Sex: Male

DRUGS (2)
  1. CIMZIA [Suspect]
     Indication: RHEUMATOID ARTHRITIS
     Route: 058
     Dates: start: 20130726, end: 201310
  2. NO CONCOMITANT MEDICATION [Concomitant]

REACTIONS (1)
  - Melanocytic naevus [Unknown]
